FAERS Safety Report 11745115 (Version 1)
Quarter: 2015Q4

REPORT INFORMATION
  Report Type: Spontaneous
  Country: US (occurrence: US)
  Receive Date: 20151117
  Receipt Date: 20151117
  Transmission Date: 20160304
  Serious: Yes (Hospitalization)
  Sender: FDA-Public Use
  Company Number: US-AMGEN-USASP2015120686

PATIENT
  Age: 71 Year
  Sex: Male

DRUGS (1)
  1. SENSIPAR [Suspect]
     Active Substance: CINACALCET HYDROCHLORIDE
     Indication: HYPERPARATHYROIDISM TERTIARY
     Dosage: 30 MG, UNK
     Route: 048
     Dates: start: 201502

REACTIONS (5)
  - Dizziness [Unknown]
  - Hypotension [Unknown]
  - Off label use [Unknown]
  - Blood calcium abnormal [Unknown]
  - Nausea [Unknown]
